FAERS Safety Report 12486277 (Version 1)
Quarter: 2016Q2

REPORT INFORMATION
  Report Type: Spontaneous
  Country: US (occurrence: US)
  Receive Date: 20160621
  Receipt Date: 20160621
  Transmission Date: 20160815
  Serious: Yes (Other)
  Sender: FDA-Public Use
  Company Number: US-ACTAVIS-2016-12554

PATIENT
  Age: 65 Year
  Sex: Female

DRUGS (3)
  1. PROBENECID (WATSON LABORATORIES) [Suspect]
     Active Substance: PROBENECID
     Indication: NEUROSYPHILIS
     Dosage: 500 MG, QID (ONLY 2 DOSES WERE ADMINISTERED)
     Route: 065
  2. BENZYLPENICILLIN (UNKNOWN) [Suspect]
     Active Substance: PENICILLIN G
     Indication: NEUROSYPHILIS
     Dosage: 2.4 MILLION UNITS
     Route: 030
  3. BENZYLPENICILLIN (UNKNOWN) [Suspect]
     Active Substance: PENICILLIN G
     Dosage: 4 MILLION UNITS, EVERY 4 HOURS
     Route: 042

REACTIONS (2)
  - Toxic encephalopathy [Recovered/Resolved]
  - Acute kidney injury [Recovering/Resolving]
